FAERS Safety Report 4834206-4 (Version None)
Quarter: 2005Q4

REPORT INFORMATION
  Report Type: 
  Country: None (occurrence: None)
  Receive Date: 20051122
  Receipt Date: 20051115
  Transmission Date: 20060501
  Serious: Yes (Hospitalization)
  Sender: FDA-Public Use
  Company Number: 2005UW17400

PATIENT
  Age: 62 Year
  Sex: Female
  Weight: 73.9 kg

DRUGS (2)
  1. SEROQUEL [Suspect]
     Indication: BIPOLAR DISORDER
     Dosage: 200 TO 800 MG
     Route: 048
     Dates: start: 20040101
  2. LITHIUM [Concomitant]

REACTIONS (4)
  - ANOREXIA [None]
  - ANXIETY [None]
  - INSOMNIA [None]
  - MENTAL DISORDER [None]
